FAERS Safety Report 14374903 (Version 1)
Quarter: 2018Q1

REPORT INFORMATION
  Report Type: Spontaneous
  Country: US (occurrence: US)
  Receive Date: 20180110
  Receipt Date: 20180110
  Transmission Date: 20180509
  Serious: No
  Sender: FDA-Public Use
  Company Number: None

PATIENT
  Age: 55 Year
  Sex: Female

DRUGS (1)
  1. TALTZ [Suspect]
     Active Substance: IXEKIZUMAB
     Indication: PSORIASIS
     Dosage: 80MG EVERY 2 WEEKS  SQ
     Route: 058
     Dates: start: 20171018, end: 20171201

REACTIONS (2)
  - Job dissatisfaction [None]
  - Musculoskeletal stiffness [None]

NARRATIVE: CASE EVENT DATE: 20180101
